FAERS Safety Report 5338594-4 (Version None)
Quarter: 2007Q2

REPORT INFORMATION
  Report Type: 
  Country: None (occurrence: None)
  Receive Date: 20070530
  Receipt Date: 20070525
  Transmission Date: 20071010
  Serious: Yes (Death, Life-Threatening, Hospitalization)
  Sender: FDA-Public Use
  Company Number: HQWYE377125MAY07

PATIENT
  Sex: Female
  Weight: 48 kg

DRUGS (2)
  1. GEMTUZUMAB OZOGAMICIN [Suspect]
     Indication: ACUTE MYELOID LEUKAEMIA
     Dosage: CUMULATIVE DOSE GIVEN 19.50 MG (3.00 MG GIVEN AT LAST DOSE)
     Route: 065
     Dates: start: 20060715, end: 20061005
  2. IDARUBICIN HCL [Concomitant]
     Dosage: 15 MG BOLUS, FREQUENCY UNKNOWN
     Route: 042
     Dates: end: 20070508

REACTIONS (2)
  - APLASIA [None]
  - SEPSIS [None]
